FAERS Safety Report 9271393 (Version 1)
Quarter: 2013Q2

REPORT INFORMATION
  Report Type: Spontaneous
  Country: DE (occurrence: DE)
  Receive Date: 20130506
  Receipt Date: 20130506
  Transmission Date: 20140414
  Serious: Yes (Hospitalization)
  Sender: FDA-Public Use
  Company Number: DE-AMGEN-DEUSP2013026550

PATIENT
  Age: 80 Year
  Sex: Female

DRUGS (3)
  1. PROLIA [Suspect]
     Indication: OSTEOPOROSIS
     Dosage: 60 MG, UNK
     Route: 058
     Dates: start: 20120625
  2. PROLIA [Suspect]
     Dosage: UNK
  3. UNACID                             /00903602/ [Concomitant]
     Indication: INFLUENZA
     Dosage: 1.5 G, 3*
     Dates: start: 20121222, end: 201301

REACTIONS (3)
  - Coagulation factor deficiency [Unknown]
  - Haematoma [Not Recovered/Not Resolved]
  - Retroperitoneal haemorrhage [Unknown]
